FAERS Safety Report 12847676 (Version 1)
Quarter: 2016Q4

REPORT INFORMATION
  Report Type: Spontaneous
  Country: US (occurrence: US)
  Receive Date: 20161014
  Receipt Date: 20161014
  Transmission Date: 20170207
  Serious: Yes (Life-Threatening)
  Sender: FDA-Public Use
  Company Number: US-FRESENIUS KABI-FK201607796

PATIENT
  Age: 51 Year
  Sex: Female

DRUGS (2)
  1. ALTEPLASE [Concomitant]
     Active Substance: ALTEPLASE
     Indication: THROMBOLYSIS
     Route: 065
  2. HEPARIN SODIUM (MANUFACTURER UNKNOWN) [Suspect]
     Active Substance: HEPARIN SODIUM
     Indication: ANTICOAGULANT THERAPY
     Route: 042

REACTIONS (1)
  - Cardiac tamponade [Recovered/Resolved]
